FAERS Safety Report 6153734-5 (Version None)
Quarter: 2009Q2

REPORT INFORMATION
  Report Type: 
  Country: None (occurrence: None)
  Receive Date: 20090410
  Receipt Date: 20090401
  Transmission Date: 20091009
  Serious: Yes (Other)
  Sender: FDA-Public Use
  Company Number: 2009SP007039

PATIENT
  Age: 59 Year
  Sex: Female

DRUGS (2)
  1. TEMODAR [Suspect]
     Indication: DRUG USE FOR UNKNOWN INDICATION
     Dosage: PO
     Route: 048
  2. THALOMID [Suspect]
     Indication: PANCREATIC CARCINOMA
     Dosage: 50 MG; QD; PO
     Route: 048
     Dates: start: 20081101, end: 20081202

REACTIONS (4)
  - NAUSEA [None]
  - RASH [None]
  - SWELLING [None]
  - VOMITING [None]
